FAERS Safety Report 16663653 (Version 2)
Quarter: 2019Q3

REPORT INFORMATION
  Report Type: Spontaneous
  Country: US (occurrence: US)
  Receive Date: 20190802
  Receipt Date: 20190807
  Transmission Date: 20191004
  Serious: Yes (Other)
  Sender: FDA-Public Use
  Company Number: US-JNJFOC-20190739521

PATIENT
  Age: 56 Year
  Sex: Male
  Weight: 54.03 kg

DRUGS (16)
  1. REMICADE [Suspect]
     Active Substance: INFLIXIMAB
     Indication: PRODUCT USED FOR UNKNOWN INDICATION
     Route: 042
  2. HUMIRA [Suspect]
     Active Substance: ADALIMUMAB
     Indication: PRODUCT USED FOR UNKNOWN INDICATION
     Route: 058
  3. FAMOTIDINE. [Concomitant]
     Active Substance: FAMOTIDINE
  4. CIPRO [Concomitant]
     Active Substance: CIPROFLOXACIN HYDROCHLORIDE
     Indication: CROHN^S DISEASE
     Route: 048
  5. IMODIUM [Suspect]
     Active Substance: LOPERAMIDE HYDROCHLORIDE
     Indication: DIARRHOEA
     Dosage: ONCE DAILY
     Route: 065
  6. FOLIC ACID. [Concomitant]
     Active Substance: FOLIC ACID
  7. VITAMIN B12 [Concomitant]
     Active Substance: CYANOCOBALAMIN
  8. ALLOPURINOL. [Concomitant]
     Active Substance: ALLOPURINOL
  9. TRICOR                             /00090101/ [Concomitant]
     Active Substance: ADENOSINE
  10. NIFEDIPINE. [Concomitant]
     Active Substance: NIFEDIPINE
     Indication: PRODUCT USED FOR UNKNOWN INDICATION
     Route: 048
  11. LOVASTATIN. [Concomitant]
     Active Substance: LOVASTATIN
     Indication: PRODUCT USED FOR UNKNOWN INDICATION
     Route: 048
  12. VITAMINE D [Concomitant]
     Active Substance: CHOLECALCIFEROL
     Route: 048
  13. LIALDA [Concomitant]
     Active Substance: MESALAMINE
  14. FLAGYL [Concomitant]
     Active Substance: METRONIDAZOLE\METRONIDAZOLE HYDROCHLORIDE
     Indication: CROHN^S DISEASE
     Route: 048
  15. METOPROLOL. [Concomitant]
     Active Substance: METOPROLOL
  16. APRISO [Concomitant]
     Active Substance: MESALAMINE
     Route: 048

REACTIONS (4)
  - Lower gastrointestinal haemorrhage [Unknown]
  - Diarrhoea [Not Recovered/Not Resolved]
  - Gastritis [Unknown]
  - Enteritis [Unknown]

NARRATIVE: CASE EVENT DATE: 20120828
